FAERS Safety Report 9672056 (Version 2)
Quarter: 2013Q4

REPORT INFORMATION
  Report Type: Spontaneous
  Country: ES (occurrence: ES)
  Receive Date: 20131106
  Receipt Date: 20131118
  Transmission Date: 20140711
  Serious: Yes (Death, Other)
  Sender: FDA-Public Use
  Company Number: ES-JNJFOC-20131014581

PATIENT
  Sex: 0

DRUGS (10)
  1. DOXORUBICIN [Suspect]
     Indication: MANTLE CELL LYMPHOMA
     Dosage: 6 CYCLES
     Route: 042
  2. DOXORUBICIN [Suspect]
     Indication: MANTLE CELL LYMPHOMA
     Dosage: 6 CYCLES
     Route: 065
  3. RITUXIMAB [Suspect]
     Indication: MANTLE CELL LYMPHOMA
     Dosage: 6 CYCLES
     Route: 065
  4. CYCLOPHOSPHAMIDE [Suspect]
     Indication: MANTLE CELL LYMPHOMA
     Dosage: 6 CYCLES
     Route: 065
  5. VINCRISTINE [Suspect]
     Indication: MANTLE CELL LYMPHOMA
     Dosage: 6 CYCLES
     Route: 065
  6. DEXAMETHASONE [Suspect]
     Indication: MANTLE CELL LYMPHOMA
     Dosage: 6 CYCLES
     Route: 065
  7. METHOTREXATE [Suspect]
     Indication: MANTLE CELL LYMPHOMA
     Dosage: 6 CYCLES
     Route: 065
  8. CYTARABINE [Suspect]
     Indication: MANTLE CELL LYMPHOMA
     Dosage: 6 CYCLES
     Route: 065
  9. YTTRIUM 90 IBRITUMOMAB TIUXETAN [Suspect]
     Indication: MANTLE CELL LYMPHOMA
     Dosage: CONSOLIDATION WAS SCHEDULED AFTER 12 WEEKS AFTER 6 TH CYCLE
     Route: 065
  10. FILGRASTIM [Concomitant]
     Indication: PALLIATIVE CARE
     Dosage: PEGYLATED
     Route: 065

REACTIONS (27)
  - Haematotoxicity [Fatal]
  - Bladder cancer [Fatal]
  - Myelodysplastic syndrome [Fatal]
  - Rectal cancer [Fatal]
  - Anaemia [Unknown]
  - Disease progression [Unknown]
  - Cardiotoxicity [Unknown]
  - Infection [Unknown]
  - Bacterial infection [Unknown]
  - Leukopenia [Unknown]
  - Thrombocytopenia [Unknown]
  - Febrile neutropenia [Unknown]
  - Haemorrhage [Unknown]
  - Nausea [Unknown]
  - Vomiting [Unknown]
  - Diarrhoea [Unknown]
  - Mucosal inflammation [Unknown]
  - Transaminases increased [Unknown]
  - Renal disorder [Unknown]
  - Pulmonary toxicity [Unknown]
  - Deep vein thrombosis [Unknown]
  - Neurotoxicity [Unknown]
  - Cerebrovascular accident [Unknown]
  - Personality disorder [Unknown]
  - Hypersensitivity [Unknown]
  - Pain [Unknown]
  - Neutropenia [Unknown]
